FAERS Safety Report 8829464 (Version 1)
Quarter: 2012Q4

REPORT INFORMATION
  Report Type: 
  Country: US (occurrence: US)
  Receive Date: 20121008
  Receipt Date: 20121008
  Transmission Date: 20130627
  Serious: No
  Sender: FDA-Public Use
  Company Number: US-TEVA-341441USA

PATIENT
  Sex: Female
  Weight: 68.1 kg

DRUGS (4)
  1. QVAR [Suspect]
     Indication: ASTHMA
     Dosage: 160 Microgram Daily; 2 puffs
     Route: 055
  2. LEVOTHYROXINE SODIUM [Concomitant]
  3. FLUTICASONE PROPIONATE [Concomitant]
  4. SALBUTAMOL [Concomitant]

REACTIONS (1)
  - Oropharyngeal pain [Recovered/Resolved]
